FAERS Safety Report 25300468 (Version 1)
Quarter: 2025Q2

REPORT INFORMATION
  Report Type: Spontaneous
  Country: US (occurrence: None)
  Receive Date: 20250509
  Receipt Date: 20250509
  Transmission Date: 20250717
  Serious: Yes (Other)
  Sender: FDA-CTU
  Company Number: None

PATIENT
  Age: 39 Year
  Sex: Female
  Weight: 57.15 kg

DRUGS (1)
  1. NALOXONE [Suspect]
     Active Substance: NALOXONE
     Dosage: FREQUENCY : TWICE A DAY;?
     Route: 048
     Dates: start: 20250428, end: 20250507

REACTIONS (1)
  - Drug hypersensitivity [None]

NARRATIVE: CASE EVENT DATE: 20250508
